FAERS Safety Report 13433248 (Version 4)
Quarter: 2017Q2

REPORT INFORMATION
  Report Type: Spontaneous
  Country: US (occurrence: US)
  Receive Date: 20170412
  Receipt Date: 20170623
  Transmission Date: 20170830
  Serious: Yes (Other)
  Sender: FDA-Public Use
  Company Number: US-PERRIGO-17US002977

PATIENT
  Age: 63 Year
  Sex: Male
  Weight: 86.17 kg

DRUGS (2)
  1. LICE SHAMPOO [Suspect]
     Active Substance: PIPERONYL BUTOXIDE\PYRETHRUM EXTRACT
     Indication: LICE INFESTATION
     Dosage: 1 APPLICATION, SINGLE
     Route: 061
     Dates: start: 20170330, end: 20170330
  2. BENAZEPRIL [Concomitant]
     Active Substance: BENAZEPRIL HYDROCHLORIDE
     Indication: HYPERTENSION
     Dosage: UNK
     Route: 065

REACTIONS (11)
  - Corneal abrasion [Recovering/Resolving]
  - Eye irritation [Recovering/Resolving]
  - Eye haemorrhage [Recovering/Resolving]
  - Accidental exposure to product [Recovered/Resolved]
  - Chemical eye injury [Recovering/Resolving]
  - Eye pain [Recovering/Resolving]
  - Eye swelling [Recovering/Resolving]
  - Blepharochalasis [Recovering/Resolving]
  - Eye paraesthesia [Recovering/Resolving]
  - Nausea [Recovered/Resolved]
  - Visual impairment [Recovered/Resolved]

NARRATIVE: CASE EVENT DATE: 20170330
